FAERS Safety Report 11459838 (Version 2)
Quarter: 2015Q3

REPORT INFORMATION
  Report Type: Spontaneous
  Country: US (occurrence: US)
  Receive Date: 20150904
  Receipt Date: 20150914
  Transmission Date: 20151125
  Serious: Yes (Other)
  Sender: FDA-Public Use
  Company Number: US-JNJFOC-20150900106

PATIENT
  Age: 65 Year
  Sex: Female
  Weight: 97.52 kg

DRUGS (4)
  1. INVOKANA [Suspect]
     Active Substance: CANAGLIFLOZIN
     Indication: DIABETES MELLITUS
     Route: 048
     Dates: start: 2015, end: 2015
  2. XANAX [Concomitant]
     Active Substance: ALPRAZOLAM
     Dosage: TWICE A DAY AS NEEDED
  3. PRAVACHOL [Concomitant]
     Active Substance: PRAVASTATIN SODIUM
     Indication: BLOOD CHOLESTEROL ABNORMAL
  4. LEVOTHYROXINE. [Concomitant]
     Active Substance: LEVOTHYROXINE
     Indication: THYROID DISORDER

REACTIONS (13)
  - Somnolence [Unknown]
  - Confusional state [Unknown]
  - Diarrhoea [Unknown]
  - Decreased appetite [Unknown]
  - Nausea [Unknown]
  - Dizziness [Unknown]
  - Disorientation [Unknown]
  - Blood glucose decreased [Unknown]
  - Balance disorder [Unknown]
  - Memory impairment [Unknown]
  - Loss of consciousness [Unknown]
  - Gait disturbance [Unknown]
  - Dysgeusia [Unknown]

NARRATIVE: CASE EVENT DATE: 2015
